FAERS Safety Report 8260094-2 (Version None)
Quarter: 2012Q2

REPORT INFORMATION
  Report Type: 
  Country: None (occurrence: None)
  Receive Date: 20120404
  Receipt Date: 20120327
  Transmission Date: 20120825
  Serious: Yes (Life-Threatening)
  Sender: FDA-Public Use
  Company Number: JP-FRI-1000025493

PATIENT
  Age: 85 Year
  Sex: Male

DRUGS (2)
  1. MEMANTINE [Suspect]
     Dosage: 15 MG
     Route: 048
     Dates: start: 20111101, end: 20111101
  2. MEMANTINE [Suspect]
     Indication: DEMENTIA ALZHEIMER'S TYPE
     Dosage: 5 MG
     Route: 048
     Dates: start: 20111001, end: 20111101

REACTIONS (2)
  - SUICIDE ATTEMPT [None]
  - INCORRECT DOSE ADMINISTERED [None]
